FAERS Safety Report 16925249 (Version 2)
Quarter: 2019Q4

REPORT INFORMATION
  Report Type: Report from Study
  Country: EG (occurrence: EG)
  Receive Date: 20191016
  Receipt Date: 20191031
  Transmission Date: 20200122
  Serious: Yes (Hospitalization, Other)
  Sender: FDA-Public Use
  Company Number: NVSC2019EG004098

PATIENT
  Sex: Female

DRUGS (8)
  1. ELTROXIN [Concomitant]
     Active Substance: LEVOTHYROXINE
     Indication: THYROID DISORDER
     Route: 065
  2. INTERFERON [Concomitant]
     Active Substance: INTERFERON
     Indication: HEPATITIS C
     Dosage: UNK (ONE TREATMENT COURSE)
     Route: 065
     Dates: start: 2008
  3. TASIGNA [Suspect]
     Active Substance: NILOTINIB
     Dosage: 800 MG/DAY
     Route: 048
  4. TASIGNA [Suspect]
     Active Substance: NILOTINIB
     Indication: CHRONIC MYELOID LEUKAEMIA
     Dosage: 150 MG, UNK (FOR 48 HRS) (TRIAL)
     Route: 048
     Dates: start: 2013
  5. OLFEN [Concomitant]
     Indication: OSTEOARTHRITIS
     Dosage: UNK, PRN
     Route: 065
  6. GLIVEC [Suspect]
     Active Substance: IMATINIB MESYLATE
     Indication: CHRONIC MYELOID LEUKAEMIA
     Dosage: 400 MG, QD
     Route: 048
     Dates: start: 201206, end: 2013
  7. TASIGNA [Suspect]
     Active Substance: NILOTINIB
     Dosage: 200 MG, QD
     Route: 048
     Dates: start: 2013
  8. OLFEN [Concomitant]
     Indication: CHONDROPATHY

REACTIONS (9)
  - White blood cell count increased [Recovering/Resolving]
  - Nervousness [Recovered/Resolved]
  - Drug ineffective [Recovering/Resolving]
  - Platelet count decreased [Recovered/Resolved]
  - Haemorrhage subcutaneous [Recovered/Resolved]
  - Cytogenetic analysis abnormal [Recovered/Resolved]
  - Splenomegaly [Recovered/Resolved]
  - Chest wall tumour [Recovering/Resolving]
  - Asthma [Not Recovered/Not Resolved]

NARRATIVE: CASE EVENT DATE: 2012
